FAERS Safety Report 22313020 (Version 3)
Quarter: 2023Q4

REPORT INFORMATION
  Report Type: Spontaneous
  Country: AU (occurrence: AU)
  Receive Date: 20230512
  Receipt Date: 20231031
  Transmission Date: 20240109
  Serious: Yes (Life-Threatening, Hospitalization, Other)
  Sender: FDA-Public Use
  Company Number: AU-BEH-2023158534

PATIENT
  Age: 72 Year
  Sex: Male

DRUGS (3)
  1. HUMAN IMMUNOGLOBULIN G [Suspect]
     Active Substance: HUMAN IMMUNOGLOBULIN G
     Indication: Secondary immunodeficiency
     Dosage: HALF OF 20G VIAL
     Route: 042
     Dates: start: 20230503
  2. HUMAN IMMUNOGLOBULIN G [Suspect]
     Active Substance: HUMAN IMMUNOGLOBULIN G
     Dosage: 1X 5G VIAL
     Route: 042
     Dates: start: 20230503
  3. HUMAN IMMUNOGLOBULIN G [Suspect]
     Active Substance: HUMAN IMMUNOGLOBULIN G
     Dosage: UNK
     Route: 065
     Dates: start: 20230502

REACTIONS (12)
  - Acute myocardial infarction [Unknown]
  - Heart rate increased [Unknown]
  - Chills [Unknown]
  - Hypoxia [Unknown]
  - Troponin increased [Unknown]
  - Hypervolaemia [Unknown]
  - Lung opacity [Unknown]
  - Pleural effusion [Unknown]
  - Dyspnoea [Unknown]
  - Pyrexia [Recovered/Resolved with Sequelae]
  - Oxygen saturation decreased [Unknown]
  - Pulmonary oedema [Unknown]

NARRATIVE: CASE EVENT DATE: 20230502
